FAERS Safety Report 16201675 (Version 9)
Quarter: 2019Q4

REPORT INFORMATION
  Report Type: Report from Study
  Country: None (occurrence: BE)
  Receive Date: 20190416
  Receipt Date: 20191003
  Transmission Date: 20200122
  Serious: Yes (Hospitalization, Other)
  Sender: FDA-Public Use
  Company Number: BE-ABBVIE-18S-013-2595510-00

PATIENT
  Age: 69 Year
  Sex: Female

DRUGS (13)
  1. DUODOPA [Suspect]
     Active Substance: CARBIDOPA\LEVODOPA
     Indication: PARKINSON^S DISEASE
     Dosage: MD= 10.5ML, CD= 2ML/HR DURING 16HRS, ED= 1ML
     Route: 050
     Dates: start: 20160822, end: 20160830
  2. DUODOPA [Suspect]
     Active Substance: CARBIDOPA\LEVODOPA
     Dosage: MD= 10.5ML, CD= 3.2ML/HR DURING 16HRS, ED= 1.7ML
     Route: 050
     Dates: start: 20161024, end: 20181226
  3. PROPOFOL. [Suspect]
     Active Substance: PROPOFOL
     Indication: PRODUCT USED FOR UNKNOWN INDICATION
     Route: 065
     Dates: start: 20190514, end: 20190514
  4. PROLOPA [Concomitant]
     Active Substance: BENSERAZIDE\LEVODOPA
     Dosage: FORM STRENGTH: 100MG/25MG?PROLOPA 125 DISP
  5. DUODOPA [Suspect]
     Active Substance: CARBIDOPA\LEVODOPA
     Dosage: DOSES CONTINUOUSLY MONITORED AND ADAPTED
     Route: 050
     Dates: start: 20160830, end: 20161024
  6. DUODOPA [Suspect]
     Active Substance: CARBIDOPA\LEVODOPA
     Dosage: MD= 10.5ML CD= 3.2ML/HR DURING 16HRS ED= 1.7ML
     Route: 050
     Dates: start: 20181226, end: 20190104
  7. DUODOPA [Suspect]
     Active Substance: CARBIDOPA\LEVODOPA
     Dosage: MD=10.5ML?CD=3.8ML/HR DURING 16HRS?ED=1.7ML
     Route: 050
     Dates: start: 20190411
  8. DUODOPA [Suspect]
     Active Substance: CARBIDOPA\LEVODOPA
     Route: 050
     Dates: end: 20190514
  9. PROLOPA HBS [Concomitant]
     Active Substance: BENSERAZIDE\LEVODOPA
     Indication: PARKINSON^S DISEASE
     Dosage: FORM STRENGTH: 100MG/25MG?PROLOPA 125 HBS
     Route: 048
  10. DUODOPA [Suspect]
     Active Substance: CARBIDOPA\LEVODOPA
     Dosage: MD= 10.5ML CD= 3.4ML/HR DURING 16HRS ED= 1.7ML
     Route: 050
     Dates: start: 20190104, end: 20190211
  11. DUODOPA [Suspect]
     Active Substance: CARBIDOPA\LEVODOPA
     Dosage: MD= 10.5ML?CD= 3.6ML/HR DURING 16HRS?ED= 1.7ML
     Route: 050
     Dates: start: 20190211, end: 20190411
  12. PROLOPA [Concomitant]
     Active Substance: BENSERAZIDE\LEVODOPA
     Indication: PARKINSON^S DISEASE
     Dosage: FORM STRENGTH: 100MG/25MG; 3 TIMES A DAY AND 1 TABLET ONCE A DAY?PROLOPA 125 DISP
     Route: 048
     Dates: start: 20181226, end: 20181226
  13. DUODOPA [Suspect]
     Active Substance: CARBIDOPA\LEVODOPA
     Dosage: MD=10.5ML CD=3.8ML/HR DURING 16HRS ED=1.7ML
     Route: 050
     Dates: start: 20190514

REACTIONS (26)
  - Fall [Recovered/Resolved]
  - Anxiety [Unknown]
  - Freezing phenomenon [Unknown]
  - Hospitalisation [Not Recovered/Not Resolved]
  - Amnesia [Unknown]
  - Gastrooesophageal reflux disease [Not Recovered/Not Resolved]
  - Hypotension [Recovering/Resolving]
  - Device use issue [Unknown]
  - Device issue [Recovered/Resolved]
  - Off label use [Recovered/Resolved]
  - Oxygen saturation decreased [Unknown]
  - Confusional state [Not Recovered/Not Resolved]
  - Hallucination [Recovered/Resolved]
  - Dyspepsia [Not Recovered/Not Resolved]
  - Cognitive disorder [Unknown]
  - Pyrexia [Recovered/Resolved]
  - Speech disorder [Unknown]
  - Intentional medical device removal by patient [Recovered/Resolved]
  - Gastritis [Unknown]
  - Pneumonia aspiration [Recovering/Resolving]
  - Disorientation [Recovering/Resolving]
  - Overdose [Unknown]
  - Feeling abnormal [Unknown]
  - Dementia [Unknown]
  - Gait disturbance [Unknown]
  - Device dislocation [Recovered/Resolved]

NARRATIVE: CASE EVENT DATE: 201812
